FAERS Safety Report 20977134 (Version 1)
Quarter: 2022Q2

REPORT INFORMATION
  Report Type: Spontaneous
  Country: US (occurrence: US)
  Receive Date: 20220617
  Receipt Date: 20220617
  Transmission Date: 20220721
  Serious: Yes (Death)
  Sender: FDA-Public Use
  Company Number: US-G1 THERAPEUTICS-2022G1US0000140

PATIENT

DRUGS (1)
  1. COSELA [Suspect]
     Active Substance: TRILACICLIB DIHYDROCHLORIDE
     Indication: Product used for unknown indication
     Dosage: 1 MILLIGRAM, SINGLE
     Route: 065

REACTIONS (1)
  - Death [Fatal]

NARRATIVE: CASE EVENT DATE: 20220327
